FAERS Safety Report 11789180 (Version 2)
Quarter: 2016Q1

REPORT INFORMATION
  Report Type: Spontaneous
  Country: US (occurrence: US)
  Receive Date: 20151201
  Receipt Date: 20160128
  Transmission Date: 20160525
  Serious: No
  Sender: FDA-Public Use
  Company Number: US-009507513-1511USA013975

PATIENT
  Age: 52 Year
  Sex: Male
  Weight: 112.2 kg

DRUGS (15)
  1. DIINDOLYLMETHANE [Suspect]
     Active Substance: 3,3^-DIINDOLYLMETHANE
     Dosage: UNK, EVERY OTHER DAY
     Dates: end: 201511
  2. NAC [Concomitant]
     Dosage: UNK
  3. AZITHROMYCIN ANHYDROUS. [Concomitant]
     Active Substance: AZITHROMYCIN ANHYDROUS
     Dosage: UNK, QD, AS DIRECTED
     Route: 048
     Dates: end: 20151216
  4. KEFLEX [Concomitant]
     Active Substance: CEPHALEXIN
     Dosage: 1 DF, QID
     Route: 048
     Dates: end: 20151216
  5. 5-METHYLTETRAHYDROFOLATE [Concomitant]
     Dosage: UNK
  6. TESTOSTERONE CYPIONATE. [Concomitant]
     Active Substance: TESTOSTERONE CYPIONATE
     Dosage: 1 ML, UNK
     Route: 030
     Dates: end: 20151216
  7. NIACIN. [Concomitant]
     Active Substance: NIACIN
     Dosage: UNK
  8. TESTOSTERONE CYPIONATE. [Concomitant]
     Active Substance: TESTOSTERONE CYPIONATE
     Dosage: 0.5 ML, Q 7 DAYS
     Route: 030
     Dates: start: 20150824
  9. BELSOMRA [Suspect]
     Active Substance: SUVOREXANT
     Indication: INSOMNIA
     Dosage: 20 MG AT BEDTIME, PRN
     Route: 048
     Dates: start: 20151113
  10. ATENOLOL. [Concomitant]
     Active Substance: ATENOLOL
     Dosage: 1 TABLET, QD
     Route: 048
     Dates: start: 20151113
  11. VITAMIN D [Concomitant]
     Active Substance: CHOLECALCIFEROL
     Dosage: UNK
  12. KYOLIC [Concomitant]
     Dosage: UNK
  13. METFORMIN HYDROCHLORIDE. [Concomitant]
     Active Substance: METFORMIN HYDROCHLORIDE
     Dosage: 1 TABLET, QD
     Dates: start: 20150824
  14. ADEMETIONINE [Concomitant]
     Active Substance: ADEMETIONINE
     Dosage: UNK
     Route: 048
  15. DEPO-TESTOSTERONE [Concomitant]
     Active Substance: TESTOSTERONE CYPIONATE
     Dosage: 1 ML, UNK
     Route: 030
     Dates: start: 20150727

REACTIONS (3)
  - Feeling abnormal [Unknown]
  - Therapeutic response unexpected [Unknown]
  - Somnolence [Unknown]

NARRATIVE: CASE EVENT DATE: 201511
